FAERS Safety Report 5290213-1 (Version None)
Quarter: 2007Q2

REPORT INFORMATION
  Report Type: 
  Country: None (occurrence: None)
  Receive Date: 20070402
  Receipt Date: 20070320
  Transmission Date: 20071010
  Serious: Yes (Other)
  Sender: FDA-Public Use
  Company Number: MC200700257

PATIENT
  Sex: Female

DRUGS (3)
  1. ANGIOMAX [Suspect]
     Indication: PERCUTANEOUS CORONARY INTERVENTION
     Dosage: SEE IMAGE
     Route: 040
     Dates: start: 20070320, end: 20070320
  2. PLAVIX [Concomitant]
  3. INTEGRILIN [Concomitant]

REACTIONS (4)
  - IN-STENT ARTERIAL RESTENOSIS [None]
  - PAIN IN JAW [None]
  - POST PROCEDURAL COMPLICATION [None]
  - THROMBOSIS IN DEVICE [None]
